FAERS Safety Report 7392865-9 (Version None)
Quarter: 2011Q1

REPORT INFORMATION
  Report Type: 
  Country: None (occurrence: None)
  Receive Date: 20110330
  Receipt Date: 20110330
  Transmission Date: 20110831
  Serious: Yes (Life-Threatening, Other)
  Sender: FDA-Public Use
  Company Number: None

PATIENT
  Age: 60 Year
  Sex: Female
  Weight: 58.9676 kg

DRUGS (1)
  1. CHANTIX [Suspect]
     Indication: SMOKING CESSATION THERAPY
     Dosage: .5MG 2 X DAILY
     Dates: start: 20101001, end: 20101229

REACTIONS (8)
  - PSYCHOTIC DISORDER [None]
  - AGGRESSION [None]
  - ANGER [None]
  - THINKING ABNORMAL [None]
  - MANIA [None]
  - IMPAIRED WORK ABILITY [None]
  - SCREAMING [None]
  - CONFUSIONAL STATE [None]
